FAERS Safety Report 5034041-0 (Version None)
Quarter: 2006Q2

REPORT INFORMATION
  Report Type: 
  Country: None (occurrence: None)
  Receive Date: 20060515
  Receipt Date: 20050503
  Transmission Date: 20061013
  Serious: Yes (Other)
  Sender: FDA-Public Use
  Company Number: 18181

PATIENT
  Age: 76 Year
  Sex: Female

DRUGS (1)
  1. FAMOTIDINE [Suspect]
     Indication: ULCER
     Dosage: 20MG/DAILY

REACTIONS (1)
  - DRUG INEFFECTIVE [None]
